FAERS Safety Report 18123128 (Version 1)
Quarter: 2020Q3

REPORT INFORMATION
  Report Type: Spontaneous
  Country: FR (occurrence: FR)
  Receive Date: 20200807
  Receipt Date: 20200807
  Transmission Date: 20201103
  Serious: Yes (Other)
  Sender: FDA-Public Use
  Company Number: FR-CADILA HEALTHCARE LIMITED-FR-ZYDUS-024591

PATIENT

DRUGS (2)
  1. TAMOXIFEN [Suspect]
     Active Substance: TAMOXIFEN
     Indication: BREAST CANCER
     Dosage: UNSPECIFIED
     Route: 048
     Dates: start: 2014
  2. LEVOTHYROX [Suspect]
     Active Substance: LEVOTHYROXINE
     Indication: HYPOTHYROIDISM
     Dosage: UNSPECIFIED
     Route: 048
     Dates: start: 2008

REACTIONS (1)
  - Arrhythmia [Recovered/Resolved with Sequelae]

NARRATIVE: CASE EVENT DATE: 2018
